FAERS Safety Report 24156456 (Version 2)
Quarter: 2024Q3

REPORT INFORMATION
  Report Type: Spontaneous
  Country: CA (occurrence: CA)
  Receive Date: 20240731
  Receipt Date: 20240910
  Transmission Date: 20241016
  Serious: Yes (Hospitalization, Other)
  Sender: PFIZER
  Company Number: CA-PFIZER INC-202201208427

PATIENT
  Age: 13 Year
  Sex: Male
  Weight: 63 kg

DRUGS (1)
  1. ABRILADA [Suspect]
     Active Substance: ADALIMUMAB-AFZB
     Indication: Crohn^s disease
     Dosage: 1 DF,160 MG WEEK 0, 80MG WEEK 2, THEN 40MG EVERY 2 WEEKS
     Route: 058
     Dates: start: 20220513, end: 202402

REACTIONS (13)
  - Fistula of small intestine [Unknown]
  - Cellulitis [Unknown]
  - Small intestine ulcer [Unknown]
  - Enteritis infectious [Unknown]
  - Drug level decreased [Unknown]
  - Drug ineffective [Unknown]
  - COVID-19 [Recovered/Resolved]
  - C-reactive protein increased [Unknown]
  - Red blood cell sedimentation rate increased [Unknown]
  - Haemoglobin increased [Unknown]
  - Condition aggravated [Not Recovered/Not Resolved]
  - Anal fissure [Unknown]
  - Off label use [Unknown]

NARRATIVE: CASE EVENT DATE: 20220101
